FAERS Safety Report 20412039 (Version 2)
Quarter: 2022Q3

REPORT INFORMATION
  Report Type: Spontaneous
  Country: US (occurrence: US)
  Receive Date: 20220201
  Receipt Date: 20220902
  Transmission Date: 20221027
  Serious: No
  Sender: FDA-Public Use
  Company Number: US-ABBVIE-21K-163-4205086-00

PATIENT
  Age: 69 Year
  Sex: Male

DRUGS (3)
  1. LUPRON DEPOT [Suspect]
     Active Substance: LEUPROLIDE ACETATE
     Indication: Product used for unknown indication
     Route: 065
  2. XTANDI [Suspect]
     Active Substance: ENZALUTAMIDE
     Indication: Prostate cancer stage IV
     Route: 048
     Dates: start: 202006
  3. XTANDI [Suspect]
     Active Substance: ENZALUTAMIDE
     Indication: Metastases to bone
     Route: 048
     Dates: start: 20220218

REACTIONS (4)
  - Nail discolouration [Unknown]
  - Nail disorder [Unknown]
  - Nail hypertrophy [Unknown]
  - Dry skin [Unknown]

NARRATIVE: CASE EVENT DATE: 20201104
